FAERS Safety Report 21135341 (Version 1)
Quarter: 2022Q3

REPORT INFORMATION
  Report Type: Report from Study
  Country: CH (occurrence: CH)
  Receive Date: 20220727
  Receipt Date: 20220727
  Transmission Date: 20221027
  Serious: Yes (Hospitalization, Other)
  Sender: FDA-Public Use
  Company Number: CH-ABBVIE-22K-151-4442295-00

PATIENT
  Age: 72 Year
  Sex: Male
  Weight: 73.5 kg

DRUGS (9)
  1. CARBIDOPA\LEVODOPA [Suspect]
     Active Substance: CARBIDOPA\LEVODOPA
     Indication: Parkinson^s disease
     Dosage: 1 CASSETTE A DAY, 2.8 ML/H
     Route: 050
     Dates: start: 201301
  2. CARBIDOPA\LEVODOPA [Suspect]
     Active Substance: CARBIDOPA\LEVODOPA
  3. MIRABEGRON [Concomitant]
     Active Substance: MIRABEGRON
     Indication: Bladder disorder
     Dosage: 1X
     Route: 048
     Dates: start: 20220706
  4. RIVASTIGMINE [Concomitant]
     Active Substance: RIVASTIGMINE
     Indication: Bladder disorder
     Dosage: 1X
     Route: 003
     Dates: start: 20220628
  5. BENSERAZIDE HYDROCHLORIDE\LEVODOPA [Concomitant]
     Active Substance: BENSERAZIDE HYDROCHLORIDE\LEVODOPA
     Indication: Parkinson^s disease
     Dosage: 1X
     Route: 048
     Dates: start: 20220628
  6. MOVICOL [Concomitant]
     Active Substance: POLYETHYLENE GLYCOL 3350\POTASSIUM CHLORIDE\SODIUM BICARBONATE\SODIUM CHLORIDE
     Indication: Gastrointestinal disorder
     Dosage: 1X
     Route: 048
     Dates: start: 20220628
  7. METAMIZOLE [Concomitant]
     Active Substance: METAMIZOLE
     Indication: Nervous system disorder
     Dosage: 4X
     Route: 048
     Dates: start: 20220718
  8. QUETIAPINE [Concomitant]
     Active Substance: QUETIAPINE
     Indication: Nervous system disorder
     Dosage: 2X
     Route: 048
     Dates: start: 20220628
  9. TAMSULOSIN [Concomitant]
     Active Substance: TAMSULOSIN
     Indication: Urinary tract disorder
     Dosage: 1X
     Route: 048
     Dates: start: 20220623

REACTIONS (6)
  - Facial bones fracture [Unknown]
  - Fall [Unknown]
  - Rehabilitation therapy [Recovered/Resolved]
  - Limb injury [Unknown]
  - Contusion [Unknown]
  - On and off phenomenon [Recovered/Resolved]

NARRATIVE: CASE EVENT DATE: 20220623
